FAERS Safety Report 24386415 (Version 1)
Quarter: 2024Q4

REPORT INFORMATION
  Report Type: Spontaneous
  Country: CN (occurrence: CN)
  Receive Date: 20241002
  Receipt Date: 20241002
  Transmission Date: 20250115
  Serious: Yes (Other)
  Sender: ABBVIE
  Company Number: CN-ABBVIE-5941973

PATIENT
  Age: 27 Year
  Sex: Male
  Weight: 54 kg

DRUGS (2)
  1. UPADACITINIB [Suspect]
     Active Substance: UPADACITINIB
     Indication: Immunosuppression
     Route: 048
     Dates: start: 20240523, end: 20240731
  2. UPADACITINIB [Suspect]
     Active Substance: UPADACITINIB
     Indication: Immunosuppression
     Dosage: DOSE REDUCED
     Route: 048
     Dates: start: 2024

REACTIONS (1)
  - White blood cell count decreased [Recovering/Resolving]

NARRATIVE: CASE EVENT DATE: 20240731
